FAERS Safety Report 7036214-4 (Version None)
Quarter: 2010Q4

REPORT INFORMATION
  Report Type: 
  Country: None (occurrence: None)
  Receive Date: 20101008
  Receipt Date: 20100928
  Transmission Date: 20110411
  Serious: No
  Sender: FDA-Public Use
  Company Number: GB-B.I. PHARMACEUTICALS,INC./RIDGEFIELD-2010-UK-00812UK

PATIENT
  Age: 73 Year
  Sex: Male
  Weight: 85 kg

DRUGS (6)
  1. SPIRIVA 18 MICROGRAM INHALATION, HARD CAPSULE [Suspect]
     Indication: CHRONIC OBSTRUCTIVE PULMONARY DISEASE
     Dosage: 18 MCG
     Route: 055
     Dates: start: 20100504, end: 20100520
  2. SIMVASTATIN [Concomitant]
     Indication: CORONARY ARTERY DISEASE
     Dosage: 40 MG
     Route: 048
     Dates: start: 20050414
  3. RAMIPRIL [Concomitant]
     Indication: CORONARY ARTERY DISEASE
     Dosage: 10 MG
     Route: 048
     Dates: start: 20070328
  4. AMLODIPINE [Concomitant]
     Indication: CORONARY ARTERY DISEASE
     Dosage: 10 MG
     Route: 048
     Dates: start: 20080513
  5. SALMETEROL [Concomitant]
     Indication: ASTHMA
     Dosage: 25 MG
     Route: 055
     Dates: start: 20090406
  6. VENTOLIN [Concomitant]
     Indication: ASTHMA
     Dosage: 100 MCG
     Route: 055
     Dates: start: 20090223

REACTIONS (3)
  - DEPRESSED MOOD [None]
  - MEMORY IMPAIRMENT [None]
  - TEARFULNESS [None]
